FAERS Safety Report 10050304 (Version 8)
Quarter: 2020Q3

REPORT INFORMATION
  Report Type: Report from Study
  Country: BE (occurrence: BE)
  Receive Date: 20140401
  Receipt Date: 20161202
  Transmission Date: 20201105
  Serious: Yes (Hospitalization)
  Sender: FDA-Public Use
  Company Number: PHHY2014BE037540

PATIENT
  Age: 72 Year
  Sex: Female

DRUGS (25)
  1. DEXAMETHASONE. [Concomitant]
     Active Substance: DEXAMETHASONE
     Dosage: 4 MG, UNK
     Route: 048
     Dates: start: 20140309
  2. EMEND [Concomitant]
     Active Substance: APREPITANT
     Indication: NAUSEA
     Dosage: 125 MG, UNK
     Route: 048
     Dates: start: 20140306
  3. 5?FLUOROURACIL [Suspect]
     Active Substance: FLUOROURACIL
     Dosage: 1 DF, BIW
     Route: 042
     Dates: start: 20140220
  4. SIMVASTATINE [Concomitant]
     Active Substance: SIMVASTATIN
     Indication: HYPERCHOLESTEROLAEMIA
     Dosage: 20 MG, UNK
     Route: 048
     Dates: start: 200412
  5. BISOPROLOL [Concomitant]
     Active Substance: BISOPROLOL
     Indication: HYPERTENSION
     Dosage: 10 MG, UNK
  6. FOLINIC ACID [Suspect]
     Active Substance: LEUCOVORIN
     Indication: GASTROOESOPHAGEAL CANCER
     Dosage: 1 DF, BIW
     Route: 042
     Dates: start: 20140220
  7. ONARTUZUMAB. [Suspect]
     Active Substance: ONARTUZUMAB
     Indication: GASTROOESOPHAGEAL CANCER
     Dosage: 1 DF, BIW
     Route: 042
     Dates: start: 20140220
  8. OXALIPLATIN. [Suspect]
     Active Substance: OXALIPLATIN
     Indication: GASTROOESOPHAGEAL CANCER
     Dosage: 1 DF, BIW
     Route: 042
     Dates: start: 20140220
  9. 5?FLUOROURACIL [Suspect]
     Active Substance: FLUOROURACIL
     Indication: GASTROOESOPHAGEAL CANCER
     Dosage: 1 DF, BIW
     Route: 040
     Dates: start: 20140220
  10. LEXOTAN [Concomitant]
     Active Substance: BROMAZEPAM
     Indication: DEPRESSION
     Dosage: 3 MG, UNK
     Route: 048
     Dates: start: 199808
  11. DEXAMETHASONE. [Concomitant]
     Active Substance: DEXAMETHASONE
     Dosage: 8 MG, UNK
     Route: 048
     Dates: start: 20140308
  12. EMEND [Concomitant]
     Active Substance: APREPITANT
     Dosage: 80 MG, UNK
     Route: 048
     Dates: start: 20140307
  13. ZOFRAN [Concomitant]
     Active Substance: ONDANSETRON HYDROCHLORIDE
     Indication: NAUSEA
     Dosage: 8 MG, UNK
     Route: 042
     Dates: start: 20140306
  14. PRIMPERAN [Concomitant]
     Active Substance: METOCLOPRAMIDE HYDROCHLORIDE
     Indication: NAUSEA
     Dosage: 10 MG, UNK
     Route: 048
     Dates: start: 20140317, end: 20140331
  15. OXALIPLATIN. [Suspect]
     Active Substance: OXALIPLATIN
     Dosage: 85MG/M2 1 IN 2 WEEK
     Route: 042
     Dates: start: 20140306
  16. ONARTUZUMAB. [Suspect]
     Active Substance: ONARTUZUMAB
     Dosage: 10 MG/KG, UNK
     Route: 042
     Dates: start: 20140306
  17. BELSAR (OLMESARTAN MEDOXOMIL) [Concomitant]
     Active Substance: OLMESARTAN MEDOXOMIL
     Indication: HYPERTENSION
     Dosage: 20 MG, UNK
     Route: 048
     Dates: start: 200408
  18. PALONOSETRON. [Concomitant]
     Active Substance: PALONOSETRON HYDROCHLORIDE
     Indication: NAUSEA
     Dosage: 0.25 MG, UNK
     Route: 042
     Dates: start: 20140220, end: 20140220
  19. FOLINIC ACID [Suspect]
     Active Substance: LEUCOVORIN
     Dosage: 321 MG, BIW, 400 MG/M2, 1 IN 2 WK
     Route: 042
     Dates: start: 20140306
  20. 5?FLUOROURACIL [Suspect]
     Active Substance: FLUOROURACIL
     Dosage: 643 MG, BIW
     Route: 040
     Dates: start: 20140306
  21. 5?FLUOROURACIL [Suspect]
     Active Substance: FLUOROURACIL
     Dosage: 3857 MG, BIW, 2400 MG/M2, 1 IN 2 WK
     Route: 042
     Dates: start: 20140306
  22. LITICAN [Concomitant]
     Active Substance: ALIZAPRIDE HYDROCHLORIDE
     Indication: NAUSEA
     Dosage: 50 MG, UNK
     Route: 048
     Dates: start: 20140220
  23. SOLU?MEDROL [Concomitant]
     Active Substance: METHYLPREDNISOLONE SODIUM SUCCINATE
     Indication: NAUSEA
     Dosage: 80 MG, UNK
     Route: 042
     Dates: start: 20140220, end: 20140220
  24. DEXAMETHASONE. [Concomitant]
     Active Substance: DEXAMETHASONE
     Indication: NAUSEA
     Dosage: 20 MG, UNK
     Route: 048
     Dates: start: 20140306
  25. METOPIMAZINE [Concomitant]
     Active Substance: METOPIMAZINE
     Indication: NAUSEA
     Dosage: 5 MG, UNK
     Route: 054
     Dates: start: 20140311

REACTIONS (1)
  - Malaise [Recovered/Resolved]

NARRATIVE: CASE EVENT DATE: 20140314
